FAERS Safety Report 5258978-2 (Version None)
Quarter: 2007Q1

REPORT INFORMATION
  Report Type: 
  Country: None (occurrence: None)
  Receive Date: 20070308
  Receipt Date: 20070226
  Transmission Date: 20070707
  Serious: Yes (Hospitalization)
  Sender: FDA-Public Use
  Company Number: GBWYE066508JAN07

PATIENT
  Sex: Female
  Weight: 84 kg

DRUGS (15)
  1. ENBREL [Suspect]
     Indication: RHEUMATOID ARTHRITIS
     Route: 058
     Dates: start: 20060909, end: 20061216
  2. PREDNISOLONE [Concomitant]
     Indication: RHEUMATOID ARTHRITIS
     Dates: start: 20061016
  3. PREDNISOLONE [Concomitant]
     Indication: CARDIAC FAILURE
     Dosage: UNKNOWN
  4. PREDNISOLONE [Concomitant]
     Dates: start: 20061016
  5. CALCICHEW [Concomitant]
     Dosage: UNKNOWN
  6. CO-CODAMOL [Concomitant]
     Dosage: UNKNOWN
  7. OMEPRAZOLE [Concomitant]
     Dosage: UNKNOWN
  8. SALBUTAMOL [Concomitant]
     Dosage: UNKNOWN
  9. VISCOTEARS [Concomitant]
     Dosage: UNKNOWN
  10. WARFARIN SODIUM [Concomitant]
     Dosage: UNKNOWN
  11. RISEDRONATE SODIUM [Concomitant]
     Dosage: UNKNOWN
  12. LEFLUNOMIDE [Concomitant]
     Dosage: UNKNOWN
  13. DIHYDROCODEINE BITARTRATE INJ [Concomitant]
     Dosage: UNKNOWN
  14. FUROSEMIDE [Concomitant]
  15. VISCOTEARS [Concomitant]

REACTIONS (7)
  - ATRIAL FIBRILLATION [None]
  - BUNDLE BRANCH BLOCK LEFT [None]
  - CARDIOMEGALY [None]
  - CONDITION AGGRAVATED [None]
  - LEFT VENTRICULAR FAILURE [None]
  - MITRAL VALVE INCOMPETENCE [None]
  - PULMONARY OEDEMA [None]
